FAERS Safety Report 24699559 (Version 1)
Quarter: 2024Q4

REPORT INFORMATION
  Report Type: Spontaneous
  Country: US (occurrence: US)
  Receive Date: 20241205
  Receipt Date: 20241205
  Transmission Date: 20250115
  Serious: No
  Sender: Haleon PLC
  Company Number: US-HALEON-2213284

PATIENT
  Age: 72 Year
  Sex: Female

DRUGS (1)
  1. ACETAMINOPHEN\DEXTROMETHORPHAN HYDROBROMIDE [Suspect]
     Active Substance: ACETAMINOPHEN\DEXTROMETHORPHAN HYDROBROMIDE
     Indication: Product used for unknown indication
     Dosage: EXPDATE:20251231
     Dates: start: 20241204, end: 20241204

REACTIONS (1)
  - Hypoaesthesia oral [Recovered/Resolved]

NARRATIVE: CASE EVENT DATE: 20241204
